FAERS Safety Report 13984981 (Version 1)
Quarter: 2017Q3

REPORT INFORMATION
  Report Type: Spontaneous
  Country: CA (occurrence: CA)
  Receive Date: 20170919
  Receipt Date: 20170919
  Transmission Date: 20171128
  Serious: Yes (Other)
  Sender: FDA-Public Use
  Company Number: CA-ACTELION-A-US2017-159549

PATIENT
  Age: 73 Year
  Sex: Male

DRUGS (10)
  1. JANUVIA [Concomitant]
     Active Substance: SITAGLIPTIN PHOSPHATE
  2. ADEMPAS [Concomitant]
     Active Substance: RIOCIGUAT
  3. METFORMIN [Concomitant]
     Active Substance: METFORMIN HYDROCHLORIDE
  4. COVERSYL [Concomitant]
     Active Substance: PERINDOPRIL
  5. TECTA [Concomitant]
     Active Substance: PANTOPRAZOLE MAGNESIUM
  6. OPSUMIT [Suspect]
     Active Substance: MACITENTAN
     Indication: PULMONARY HYPERTENSION
     Dosage: 10 MG, QD
     Route: 048
  7. GLYBURIDE. [Concomitant]
     Active Substance: GLYBURIDE
  8. INVOKANA [Concomitant]
     Active Substance: CANAGLIFLOZIN
  9. SANDOZ EZETIMIBE [Concomitant]
  10. ROSUVASTATIN. [Concomitant]
     Active Substance: ROSUVASTATIN

REACTIONS (1)
  - Cataract operation [Recovering/Resolving]
